FAERS Safety Report 6427220-9 (Version None)
Quarter: 2009Q4

REPORT INFORMATION
  Report Type: 
  Country: None (occurrence: None)
  Receive Date: 20091104
  Receipt Date: 20091012
  Transmission Date: 20100525
  Serious: Yes (Death)
  Sender: FDA-Public Use
  Company Number: A0797552A

PATIENT
  Age: 50 Year
  Sex: Male
  Weight: 71.7 kg

DRUGS (6)
  1. LEXIVA [Suspect]
     Indication: HIV INFECTION
     Dosage: 1400MG PER DAY
     Route: 048
     Dates: start: 20081229, end: 20090716
  2. NORVIR [Suspect]
     Indication: HIV INFECTION
     Dosage: 100MG PER DAY
     Route: 048
     Dates: start: 20081229, end: 20090716
  3. EPZICOM [Suspect]
     Indication: HIV INFECTION
     Dosage: 1TAB PER DAY
     Route: 048
     Dates: start: 20081229, end: 20090716
  4. FISH OIL [Concomitant]
     Dosage: 1TAB PER DAY
     Route: 048
     Dates: start: 20071001, end: 20090716
  5. TRICOR [Concomitant]
     Dosage: 145MG PER DAY
     Route: 048
     Dates: start: 20090619, end: 20090716
  6. LIPITOR [Concomitant]
     Dosage: 20MG PER DAY
     Route: 048
     Dates: start: 20090619, end: 20090716

REACTIONS (1)
  - CARDIAC ARREST [None]
